FAERS Safety Report 11221231 (Version 1)
Quarter: 2015Q2

REPORT INFORMATION
  Report Type: Spontaneous
  Country: US (occurrence: US)
  Receive Date: 20150626
  Receipt Date: 20150626
  Transmission Date: 20150821
  Serious: No
  Sender: FDA-Public Use
  Company Number: US-BIOGENIDEC-2015BI087380

PATIENT
  Age: 45 Year
  Sex: Female

DRUGS (3)
  1. CYMBALTA [Concomitant]
     Active Substance: DULOXETINE HYDROCHLORIDE
  2. TECFIDERA [Suspect]
     Active Substance: DIMETHYL FUMARATE
     Indication: PRODUCT USED FOR UNKNOWN INDICATION
  3. AMPYRA [Concomitant]
     Active Substance: DALFAMPRIDINE

REACTIONS (9)
  - Memory impairment [Unknown]
  - Decreased appetite [Unknown]
  - Apathy [Unknown]
  - Disturbance in attention [Unknown]
  - Depression [Unknown]
  - Crying [Unknown]
  - Flushing [Unknown]
  - Rash [Recovered/Resolved]
  - Depressed mood [Unknown]
